FAERS Safety Report 6546106-2 (Version None)
Quarter: 2010Q1

REPORT INFORMATION
  Report Type: 
  Country: None (occurrence: None)
  Receive Date: 20100122
  Receipt Date: 20100113
  Transmission Date: 20100710
  Serious: Yes (Other)
  Sender: FDA-Public Use
  Company Number: US-BIOGENIDEC-2010BI001905

PATIENT
  Age: 59 Year
  Sex: Female
  Weight: 78 kg

DRUGS (8)
  1. TYSABRI [Suspect]
     Indication: MULTIPLE SCLEROSIS
     Route: 042
     Dates: start: 20091216
  2. TOPIRAMATE [Concomitant]
     Indication: CONVULSION
     Dates: start: 20090701
  3. CLONAZEPAM [Concomitant]
     Indication: POOR QUALITY SLEEP
     Dates: start: 20090701
  4. TIZANIDINE HCL [Concomitant]
     Indication: MUSCLE SPASTICITY
     Dates: start: 20090701
  5. POTASSIUM CHLORATE [Concomitant]
     Indication: BLOOD POTASSIUM DECREASED
     Dates: start: 20090701
  6. FLOMAX [Concomitant]
     Indication: DYSURIA
  7. OMEPRAZOLE [Concomitant]
     Indication: GASTROOESOPHAGEAL REFLUX DISEASE
     Dates: start: 20080101
  8. VITAMIN D SUPPLEMENT [Concomitant]
     Indication: VITAMIN D DECREASED
     Dates: start: 20080101

REACTIONS (2)
  - CONVULSION [None]
  - GINGIVAL PAIN [None]
